FAERS Safety Report 12009378 (Version 1)
Quarter: 2016Q1

REPORT INFORMATION
  Report Type: Spontaneous
  Country: US (occurrence: US)
  Receive Date: 20160205
  Receipt Date: 20160205
  Transmission Date: 20160526
  Serious: Yes (Hospitalization, Other)
  Sender: FDA-Public Use
  Company Number: US-ACCORD-037441

PATIENT
  Age: 29 Year
  Sex: Male

DRUGS (21)
  1. HYDROMORPHONE/HYDROMORPHONE HYDROCHLORIDE [Concomitant]
  2. RITUXIMAB [Concomitant]
     Active Substance: RITUXIMAB
     Indication: IMMUNOSUPPRESSANT DRUG THERAPY
  3. PREDNISONE. [Concomitant]
     Active Substance: PREDNISONE
     Indication: APLASIA PURE RED CELL
  4. VINCRISTINE [Suspect]
     Active Substance: VINCRISTINE
     Indication: THYMOMA
  5. PACLITAXEL/PACLITAXEL LIPOSOME [Suspect]
     Active Substance: PACLITAXEL
     Indication: THYMOMA
  6. LOPERAMIDE [Concomitant]
     Active Substance: LOPERAMIDE
  7. ATROPINE SULFATE/DIPHENOXYLATE HYDROCHLORIDE [Concomitant]
  8. GUAIFENESIN. [Concomitant]
     Active Substance: GUAIFENESIN
  9. CICLOSPORIN [Concomitant]
     Active Substance: CYCLOSPORINE
     Indication: IMMUNOSUPPRESSANT DRUG THERAPY
  10. ALLOPURINOL. [Concomitant]
     Active Substance: ALLOPURINOL
  11. AZATHIOPRINE. [Concomitant]
     Active Substance: AZATHIOPRINE
     Indication: IMMUNOSUPPRESSANT DRUG THERAPY
  12. MYCOPHENOLIC ACID. [Concomitant]
     Active Substance: MYCOPHENOLIC ACID
     Indication: IMMUNOSUPPRESSANT DRUG THERAPY
  13. SUNITINIB [Concomitant]
     Active Substance: SUNITINIB
     Indication: THYMOMA
  14. BENZONATATE. [Concomitant]
     Active Substance: BENZONATATE
     Indication: COUGH
  15. SULFAMETHOXAZOLE/TRIMETHOPRIM [Concomitant]
     Indication: PROPHYLAXIS
  16. POTASSIUM [Concomitant]
     Active Substance: POTASSIUM
  17. OPIUM TINCTURE [Concomitant]
     Active Substance: OPIUM TINCTURE
     Dosage: 10 MG OF MORPHINE EQUIVALENT PER 1 ML OF SOLVENT
  18. METHYLPREDNISOLONE. [Concomitant]
     Active Substance: METHYLPREDNISOLONE
  19. DOXORUBICIN [Suspect]
     Active Substance: DOXORUBICIN
     Indication: THYMOMA
  20. CISPLATIN. [Suspect]
     Active Substance: CISPLATIN
     Indication: THYMOMA
  21. CYCLOPHOSPHAMIDE/CYCLOPHOSPHAMIDE  MONOHYDRATE [Suspect]
     Active Substance: CYCLOPHOSPHAMIDE
     Indication: THYMOMA

REACTIONS (3)
  - Off label use [Unknown]
  - Drug ineffective [Recovering/Resolving]
  - Neuropathy peripheral [Unknown]
